FAERS Safety Report 8713322 (Version 3)
Quarter: 2012Q4

REPORT INFORMATION
  Report Type: 
  Country: US (occurrence: US)
  Receive Date: 20120808
  Receipt Date: 20121017
  Transmission Date: 20130627
  Serious: No
  Sender: FDA-Public Use
  Company Number: US-ASTRAZENECA-2012SE54125

PATIENT
  Sex: Female

DRUGS (2)
  1. PULMICORT FLEXHALER [Suspect]
     Dosage: 90 MCG, TWO PUFFS TWICE DAILY
     Route: 055
  2. PULMICORT FLEXHALER [Suspect]
     Dosage: DOSE UNKNOWN, AS REQUIRED
     Route: 055

REACTIONS (3)
  - Adverse event [Unknown]
  - Drug dose omission [Unknown]
  - Off label use [Unknown]
